FAERS Safety Report 4905361-2 (Version None)
Quarter: 2006Q1

REPORT INFORMATION
  Report Type: 
  Country: None (occurrence: None)
  Receive Date: 20060208
  Receipt Date: 20060201
  Transmission Date: 20060701
  Serious: Yes (Hospitalization)
  Sender: FDA-Public Use
  Company Number: GB-AVENTIS-200611025GDDC

PATIENT
  Age: 78 Year
  Sex: Male
  Weight: 90 kg

DRUGS (18)
  1. METRONIDAZOLE [Suspect]
     Indication: CLOSTRIDIAL INFECTION
     Dosage: DOSE: 400 MG TID
     Route: 048
     Dates: start: 20060109, end: 20060113
  2. ASPIRIN [Concomitant]
  3. CLOPIDOGREL [Concomitant]
  4. DIGOXIN [Concomitant]
  5. LANSOPRAZOLE [Concomitant]
  6. SIMVASTATIN [Concomitant]
  7. CANDESARTAN [Concomitant]
  8. ADIZEM - SLOW RELEASE [Concomitant]
  9. ALLOPURINOL [Concomitant]
  10. BUMETANIDE [Concomitant]
  11. ACYCLOVIR [Concomitant]
  12. CHLORPHENIRAMINE MALEATE [Concomitant]
     Route: 048
  13. PARACETAMOL [Concomitant]
     Route: 048
  14. HYDROCORTISONE [Concomitant]
     Route: 042
  15. ALEMTUZUMAB [Concomitant]
     Route: 042
  16. SEPTRIN [Concomitant]
     Route: 048
  17. DIFFLAM [Concomitant]
  18. SALBUTAMOL [Concomitant]
     Dosage: DOSE: 2 PUFFS

REACTIONS (3)
  - HALLUCINATION [None]
  - INSOMNIA [None]
  - RESTLESSNESS [None]
